FAERS Safety Report 22804583 (Version 2)
Quarter: 2023Q4

REPORT INFORMATION
  Report Type: Spontaneous
  Country: DE (occurrence: DE)
  Receive Date: 20230809
  Receipt Date: 20231010
  Transmission Date: 20240109
  Serious: Yes (Life-Threatening, Hospitalization, Disabling, Other)
  Sender: FDA-Public Use
  Company Number: DE-DCGMA-22198797

PATIENT
  Age: 54 Year
  Sex: Female
  Weight: 94 kg

DRUGS (8)
  1. KEYTRUDA [Suspect]
     Active Substance: PEMBROLIZUMAB
     Indication: Neoplasm malignant
     Dosage: 200 MG DURATION OF USE: 30 MINUTES
     Dates: start: 20220510
  2. PACLITAXEL [Suspect]
     Active Substance: PACLITAXEL
     Indication: Breast cancer
     Dosage: 168 MG APPLICATION TIME: 15 MINUTES
  3. CARBOPLATIN [Suspect]
     Active Substance: CARBOPLATIN
     Indication: Breast cancer
     Dosage: 190 MG APPLICATION TIME: 30 MINUTES
  4. VALSARTAN [Concomitant]
     Active Substance: VALSARTAN
     Indication: Hypertension
     Dosage: 80 MILLIGRAM, QD
  5. LEVOTHYROXINE SODIUM [Concomitant]
     Active Substance: LEVOTHYROXINE SODIUM
     Indication: Hypothyroidism
     Dosage: 75 MICROGRAM, QD
  6. PALONOSETRON [Concomitant]
     Active Substance: PALONOSETRON
     Indication: Adjuvant therapy
     Dosage: 250 MICROGRAM
     Dates: start: 20220518
  7. CIMETIDINE [Concomitant]
     Active Substance: CIMETIDINE
     Indication: Adjuvant therapy
     Dosage: 300 MILLIGRAM
     Dates: start: 20220518
  8. DEXAMETHASONE SODIUM PHOSPHATE [Concomitant]
     Active Substance: DEXAMETHASONE SODIUM PHOSPHATE
     Indication: Adjuvant therapy
     Dosage: 8 MILLIGRAM
     Dates: start: 20220518

REACTIONS (4)
  - Pancytopenia [Not Recovered/Not Resolved]
  - Rhabdomyolysis [Not Recovered/Not Resolved]
  - Hepatitis acute [Not Recovered/Not Resolved]
  - Acute kidney injury [Not Recovered/Not Resolved]

NARRATIVE: CASE EVENT DATE: 20220519
